FAERS Safety Report 5430272-6 (Version None)
Quarter: 2007Q3

REPORT INFORMATION
  Report Type: 
  Country: None (occurrence: None)
  Receive Date: 20070731
  Receipt Date: 20070416
  Transmission Date: 20080115
  Serious: No
  Sender: FDA-Public Use
  Company Number: US200704003597

PATIENT
  Age: 59 Year
  Sex: Male
  Weight: 155.6 kg

DRUGS (6)
  1. BYETTA [Suspect]
     Indication: TYPE 2 DIABETES MELLITUS
     Dosage: 5 UG, 2/D, SUBCUTANEOUS,
     Route: 058
     Dates: start: 20061201, end: 20070101
  2. BYETTA [Suspect]
     Indication: TYPE 2 DIABETES MELLITUS
     Dosage: 5 UG, 2/D, SUBCUTANEOUS,
     Route: 058
     Dates: start: 20070101, end: 20070413
  3. BYETTA [Suspect]
     Indication: TYPE 2 DIABETES MELLITUS
     Dosage: 5 UG, 2/D, SUBCUTANEOUS,
     Route: 058
     Dates: start: 20070414
  4. BYETTA          10MCG PEN, DISPOSABLE DEVICE (EXENATIDE PEN [Suspect]
     Indication: TYPE 2 DIABETES MELLITUS
     Dosage: 10UG, 2/D, SUBCUTANEOUS
     Route: 058
     Dates: start: 20070101, end: 20070101
  5. BYETTA          10MCG PEN, DISPOSABLE DEVICE (EXENATIDE PEN [Suspect]
     Indication: TYPE 2 DIABETES MELLITUS
     Dosage: 10UG, 2/D, SUBCUTANEOUS
     Route: 058
     Dates: start: 20070414
  6. EXENATIDE 10MCG PEN, DISPOSABLE DEVICE [Concomitant]

REACTIONS (5)
  - DECREASED APPETITE [None]
  - FATIGUE [None]
  - LISTLESS [None]
  - NAUSEA [None]
  - WEIGHT DECREASED [None]
